FAERS Safety Report 10392272 (Version 3)
Quarter: 2014Q3

REPORT INFORMATION
  Report Type: Report from Study
  Country: TW (occurrence: TW)
  Receive Date: 20140819
  Receipt Date: 20140826
  Transmission Date: 20150326
  Serious: Yes (Hospitalization, Other)
  Sender: FDA-Public Use
  Company Number: TW-BRISTOL-MYERS SQUIBB COMPANY-21231105

PATIENT
  Age: 85 Year
  Sex: Female

DRUGS (7)
  1. ORENCIA [Suspect]
     Active Substance: ABATACEPT
     Indication: RHEUMATOID ARTHRITIS
     Route: 041
     Dates: start: 20140328
  2. LASIX [Concomitant]
     Active Substance: FUROSEMIDE
  3. SPIRONOLACTONE. [Suspect]
     Active Substance: SPIRONOLACTONE
     Indication: CARDIAC FAILURE CONGESTIVE
     Route: 048
     Dates: start: 20140717, end: 20140719
  4. ISONIAZID. [Concomitant]
     Active Substance: ISONIAZID
  5. KALIMATE [Concomitant]
     Active Substance: POLYSTYRENE SULFONIC ACID
  6. FUROSEMIDE. [Suspect]
     Active Substance: FUROSEMIDE
  7. EXFORGE [Concomitant]
     Active Substance: AMLODIPINE BESYLATE\VALSARTAN

REACTIONS (3)
  - Cardiac failure congestive [Unknown]
  - Arrhythmia [Unknown]
  - Renal failure [Unknown]

NARRATIVE: CASE EVENT DATE: 201407
